FAERS Safety Report 8565157-X (Version None)
Quarter: 2012Q3

REPORT INFORMATION
  Report Type: 
  Country: None (occurrence: None)
  Receive Date: 20120803
  Receipt Date: 20120801
  Transmission Date: 20120928
  Serious: No
  Sender: FDA-Public Use
  Company Number: US-PFIZER INC-2012173308

PATIENT
  Sex: Male
  Weight: 69.388 kg

DRUGS (4)
  1. AREDIA [Concomitant]
     Dosage: 30 MG, UNK
  2. XALKORI [Suspect]
     Dosage: 250 MG, 2X/DAY
     Route: 048
  3. CALCIUM [Concomitant]
     Dosage: 500
  4. LOVAZA [Concomitant]
     Dosage: 1000 MG, UNK

REACTIONS (1)
  - OEDEMA PERIPHERAL [None]
